FAERS Safety Report 14667057 (Version 1)
Quarter: 2018Q1

REPORT INFORMATION
  Report Type: Report from Study
  Country: DE (occurrence: DE)
  Receive Date: 20180322
  Receipt Date: 20180322
  Transmission Date: 20180509
  Serious: Yes (Other)
  Sender: FDA-Public Use
  Company Number: DE-ALK-ABELLO A/S-2017AA001354

PATIENT

DRUGS (2)
  1. ACARIZAX [Suspect]
     Active Substance: DERMATOPHAGOIDES FARINAE\DERMATOPHAGOIDES PTERONYSSINUS
     Dosage: 12 SQ-HDM, QD
     Route: 060
     Dates: start: 20161104, end: 20170404
  2. BUDESONIDE. [Concomitant]
     Active Substance: BUDESONIDE
     Dosage: 400 MICROGRAM, UNK
     Route: 055

REACTIONS (2)
  - Uterine rupture [Unknown]
  - Pregnancy [Recovered/Resolved]
